FAERS Safety Report 4804204-5 (Version None)
Quarter: 2005Q4

REPORT INFORMATION
  Report Type: 
  Country: None (occurrence: None)
  Receive Date: 20051018
  Receipt Date: 20051018
  Transmission Date: 20060501
  Serious: Yes (Other)
  Sender: FDA-Public Use
  Company Number: None

PATIENT
  Sex: Female

DRUGS (1)
  1. LEVAQUIN [Suspect]
     Indication: CHRONIC SINUSITIS
     Dosage: 500 MG 1 X DAILY ^0^
     Dates: end: 20051005

REACTIONS (2)
  - ANGIONEUROTIC OEDEMA [None]
  - URTICARIA [None]
